FAERS Safety Report 20741270 (Version 3)
Quarter: 2022Q2

REPORT INFORMATION
  Report Type: Spontaneous
  Country: US (occurrence: US)
  Receive Date: 20220422
  Receipt Date: 20220613
  Transmission Date: 20220721
  Serious: No
  Sender: FDA-Public Use
  Company Number: US-PFIZER INC-202200589743

PATIENT
  Age: 68 Year
  Sex: Female
  Weight: 122.47 kg

DRUGS (2)
  1. PAXLOVID [Suspect]
     Active Substance: NIRMATRELVIR\RITONAVIR
     Indication: COVID-19 treatment
     Dosage: UNK
  2. LIPITOR [Suspect]
     Active Substance: ATORVASTATIN CALCIUM
     Dosage: UNK

REACTIONS (3)
  - Dysgeusia [Unknown]
  - Product taste abnormal [Unknown]
  - Diarrhoea [Unknown]
